FAERS Safety Report 6046555-5 (Version None)
Quarter: 2009Q1

REPORT INFORMATION
  Report Type: 
  Country: None (occurrence: None)
  Receive Date: 20090122
  Receipt Date: 20090108
  Transmission Date: 20090719
  Serious: Yes (Other)
  Sender: FDA-Public Use
  Company Number: PHHY2008ZA30646

PATIENT
  Sex: Female

DRUGS (1)
  1. TAREG [Suspect]
     Indication: HYPERTENSION
     Dosage: 80 MG

REACTIONS (8)
  - DYSURIA [None]
  - FEELING ABNORMAL [None]
  - GENITAL HERPES [None]
  - HERPES OPHTHALMIC [None]
  - HERPES VIRUS INFECTION [None]
  - MALAISE [None]
  - PYREXIA [None]
  - STRESS [None]
